FAERS Safety Report 9031131 (Version 1)
Quarter: 2013Q1

REPORT INFORMATION
  Report Type: Other
  Country: IT (occurrence: IT)
  Receive Date: 20130123
  Receipt Date: 20130123
  Transmission Date: 20140127
  Serious: Yes (Hospitalization)
  Sender: FDA-Public Use
  Company Number: IT-WATSON-2013-00644

PATIENT
  Age: 57 Year
  Sex: Female

DRUGS (5)
  1. LOSARTAN POTASSIUM (UNKNOWN) [Suspect]
     Indication: HYPERTENSION
     Dosage: 50 MG, DAILY
     Route: 048
     Dates: start: 20120811, end: 20121221
  2. COUMADIN                           /00014802/ [Suspect]
     Indication: VERTEBRAL ARTERY DISSECTION
     Dosage: 6.25 MG, DAILY
     Route: 048
     Dates: start: 20120811, end: 20121221
  3. SERTRALINE [Concomitant]
     Indication: PSYCHOTIC DISORDER
     Dosage: UNK, UNKNOWN
     Route: 065
  4. LORAZEPAM [Concomitant]
     Indication: PRODUCT USED FOR UNKNOWN INDICATION
     Dosage: UNK, UNKNOWN
     Route: 065
  5. OMEPRAZOLE [Concomitant]
     Indication: PRODUCT USED FOR UNKNOWN INDICATION
     Dosage: UNK, UNKNOWN
     Route: 065

REACTIONS (2)
  - International normalised ratio increased [Recovered/Resolved]
  - Hypotension [Recovered/Resolved]
